FAERS Safety Report 7945134-X (Version None)
Quarter: 2011Q4

REPORT INFORMATION
  Report Type: 
  Country: None (occurrence: None)
  Receive Date: 20111129
  Receipt Date: 20111129
  Transmission Date: 20120403
  Serious: Yes (Life-Threatening, Hospitalization, Other)
  Sender: FDA-Public Use
  Company Number: None

PATIENT
  Sex: Female
  Weight: 54.431 kg

DRUGS (1)
  1. CYMBALTA [Suspect]
     Indication: DEPRESSION

REACTIONS (20)
  - CONFUSIONAL STATE [None]
  - MUSCLE TIGHTNESS [None]
  - CONVULSION [None]
  - ACTIVITIES OF DAILY LIVING IMPAIRED [None]
  - FATIGUE [None]
  - HEADACHE [None]
  - WITHDRAWAL SYNDROME [None]
  - DRUG DOSE OMISSION [None]
  - TENSION [None]
  - HYPOAESTHESIA [None]
  - HYPERSOMNIA [None]
  - VISION BLURRED [None]
  - MUSCLE SPASMS [None]
  - MUSCLE TWITCHING [None]
  - PARALYSIS [None]
  - PARAESTHESIA [None]
  - DYSPHEMIA [None]
  - LOSS OF CONTROL OF LEGS [None]
  - PAIN [None]
  - DIZZINESS [None]
